FAERS Safety Report 25496584 (Version 1)
Quarter: 2025Q2

REPORT INFORMATION
  Report Type: Spontaneous
  Country: FR (occurrence: FR)
  Receive Date: 20250630
  Receipt Date: 20250630
  Transmission Date: 20250716
  Serious: Yes (Other)
  Sender: AUROBINDO
  Company Number: FR-AFSSAPS-MP2025000895

PATIENT
  Age: 20 Year
  Sex: Female
  Weight: 48 kg

DRUGS (10)
  1. OLANZAPINE [Suspect]
     Active Substance: OLANZAPINE
     Indication: Depression
     Dosage: 5 MILLIGRAM, ONCE A DAY
     Route: 048
     Dates: start: 20250523, end: 20250604
  2. FLUOXETINE [Suspect]
     Active Substance: FLUOXETINE HYDROCHLORIDE
     Indication: Depression
     Dosage: 20 MILLIGRAM, ONCE A DAY
     Route: 048
     Dates: start: 202505, end: 20250522
  3. FLUOXETINE [Suspect]
     Active Substance: FLUOXETINE HYDROCHLORIDE
     Dosage: 40 MILLIGRAM, ONCE A DAY
     Route: 048
     Dates: start: 20250522
  4. MIRTAZAPINE [Suspect]
     Active Substance: MIRTAZAPINE
     Indication: Depression
     Dosage: 15 MILLIGRAM, ONCE A DAY
     Route: 048
     Dates: start: 202504
  5. CYAMEMAZINE [Suspect]
     Active Substance: CYAMEMAZINE
     Indication: Sedation
     Dosage: 30 GTT DROPS, ONCE A DAY
     Route: 048
     Dates: start: 20250522, end: 20250526
  6. VALIUM [Concomitant]
     Active Substance: DIAZEPAM
     Indication: Sedation
     Dosage: 60 GTT DROPS, ONCE A DAY
     Route: 048
     Dates: start: 20250522, end: 20250526
  7. LORAZEPAM [Concomitant]
     Active Substance: LORAZEPAM
     Indication: Sedation
     Dosage: 2 MILLIGRAM, ONCE A DAY
     Route: 048
     Dates: start: 20250526, end: 20250604
  8. KETAMINE [Concomitant]
     Active Substance: KETAMINE
     Indication: Sedation
     Route: 042
     Dates: start: 20250526, end: 20250526
  9. KETAMINE [Concomitant]
     Active Substance: KETAMINE
     Route: 042
     Dates: start: 20250602, end: 20250602
  10. BUSPIRONE HYDROCHLORIDE [Concomitant]
     Active Substance: BUSPIRONE HYDROCHLORIDE
     Indication: Anxiety
     Dosage: 20 MILLIGRAM, ONCE A DAY
     Route: 048
     Dates: start: 202504

REACTIONS (1)
  - Urinary retention [Recovered/Resolved]

NARRATIVE: CASE EVENT DATE: 20250526
